FAERS Safety Report 22020581 (Version 1)
Quarter: 2023Q1

REPORT INFORMATION
  Report Type: Spontaneous
  Country: US (occurrence: None)
  Receive Date: 20230217
  Receipt Date: 20230217
  Transmission Date: 20230418
  Serious: No
  Sender: FDA-Public Use
  Company Number: None

PATIENT
  Sex: Female

DRUGS (1)
  1. STELARA [Suspect]
     Active Substance: USTEKINUMAB
     Indication: Psoriasis
     Dosage: 45MG EVERY 8 WEEKS SUBCUTANEOUS?
     Route: 058
     Dates: start: 20221005

REACTIONS (2)
  - Erythema [None]
  - Nervous system disorder [None]
